FAERS Safety Report 18680245 (Version 1)
Quarter: 2020Q4

REPORT INFORMATION
  Report Type: Spontaneous
  Country: US (occurrence: US)
  Receive Date: 20201230
  Receipt Date: 20201230
  Transmission Date: 20210114
  Serious: No
  Sender: FDA-Public Use
  Company Number: US-JNJFOC-20201250718

PATIENT
  Age: 24 Year
  Sex: Male

DRUGS (2)
  1. ADALIMUMAB [Concomitant]
     Active Substance: ADALIMUMAB
     Indication: CROHN^S DISEASE
     Route: 065
  2. STELARA [Suspect]
     Active Substance: USTEKINUMAB
     Indication: CROHN^S DISEASE
     Dosage: RECEIVED STANDARD INTRAVENOUS UST LOADING FOLLOWED BY 90 MG SUBCUTANEOUSLY EVERY 8 WEEKS
     Route: 058

REACTIONS (1)
  - Asymptomatic COVID-19 [Unknown]
